FAERS Safety Report 7340884-0 (Version None)
Quarter: 2011Q1

REPORT INFORMATION
  Report Type: 
  Country: None (occurrence: None)
  Receive Date: 20110228
  Receipt Date: 20110209
  Transmission Date: 20110831
  Serious: Yes (Other)
  Sender: FDA-Public Use
  Company Number: 2011P1004132

PATIENT
  Age: 82 Year
  Sex: Female
  Weight: 68.4932 kg

DRUGS (13)
  1. FISH OIL [Concomitant]
  2. ^AZITIA^ [Concomitant]
  3. HANDIHALER [Concomitant]
  4. METFORMIN (NO PREF. NAME) [Suspect]
     Indication: DIABETES MELLITUS
     Dates: start: 20101217
  5. SPIRIVA [Concomitant]
  6. LANOXIN [Concomitant]
  7. WARFARIN SODIUM [Suspect]
     Indication: ANTICOAGULANT THERAPY
     Dosage: PO; 5 MG;3 DAYS A WEEK;PO; 2.5 MG;4 DAYS A WEEK;PO;5 MG;4 DAYS A WEEK;PO; 2.5 MG;3 DAYS A WEEK;PO
     Route: 048
     Dates: start: 20110117, end: 20110123
  8. WARFARIN SODIUM [Suspect]
     Indication: ANTICOAGULANT THERAPY
     Dosage: PO; 5 MG;3 DAYS A WEEK;PO; 2.5 MG;4 DAYS A WEEK;PO;5 MG;4 DAYS A WEEK;PO; 2.5 MG;3 DAYS A WEEK;PO
     Route: 048
     Dates: start: 20110124
  9. WARFARIN SODIUM [Suspect]
     Indication: ANTICOAGULANT THERAPY
     Dosage: PO; 5 MG;3 DAYS A WEEK;PO; 2.5 MG;4 DAYS A WEEK;PO;5 MG;4 DAYS A WEEK;PO; 2.5 MG;3 DAYS A WEEK;PO
     Route: 048
     Dates: end: 20110116
  10. WARFARIN SODIUM [Suspect]
     Indication: ANTICOAGULANT THERAPY
     Dosage: PO; 5 MG;3 DAYS A WEEK;PO; 2.5 MG;4 DAYS A WEEK;PO;5 MG;4 DAYS A WEEK;PO; 2.5 MG;3 DAYS A WEEK;PO
     Route: 048
     Dates: start: 20110124
  11. WARFARIN SODIUM [Suspect]
     Indication: ANTICOAGULANT THERAPY
     Dosage: PO; 5 MG;3 DAYS A WEEK;PO; 2.5 MG;4 DAYS A WEEK;PO;5 MG;4 DAYS A WEEK;PO; 2.5 MG;3 DAYS A WEEK;PO
     Route: 048
     Dates: start: 20110117, end: 20110123
  12. FUROSEMIDE [Concomitant]
  13. ACCUPRIL [Concomitant]

REACTIONS (1)
  - INTERNATIONAL NORMALISED RATIO FLUCTUATION [None]
